FAERS Safety Report 9233582 (Version 1)
Quarter: 2013Q2

REPORT INFORMATION
  Report Type: Spontaneous
  Country: US (occurrence: US)
  Receive Date: 20130416
  Receipt Date: 20130416
  Transmission Date: 20140414
  Serious: No
  Sender: FDA-Public Use
  Company Number: US-BANPHARM-20120401

PATIENT
  Age: 87 Year
  Sex: Male

DRUGS (4)
  1. ALEVE LIQUID GELS 220 MG [Suspect]
     Dosage: 2 DF, ONCE,
     Route: 048
     Dates: start: 20121123, end: 20121123
  2. GABAPENTIN [Concomitant]
  3. ALLOPURINOL [Concomitant]
  4. FENOFIBRATE [Concomitant]

REACTIONS (2)
  - Arthralgia [Recovered/Resolved]
  - Musculoskeletal discomfort [Recovered/Resolved]
